FAERS Safety Report 6074441-3 (Version None)
Quarter: 2009Q1

REPORT INFORMATION
  Report Type: 
  Country: None (occurrence: None)
  Receive Date: 20090206
  Receipt Date: 20090129
  Transmission Date: 20090719
  Serious: Yes (Hospitalization)
  Sender: FDA-Public Use
  Company Number: WAES 0901BEL00008

PATIENT
  Age: 76 Year
  Sex: Male

DRUGS (3)
  1. PRINIVIL [Suspect]
     Indication: HYPERTENSION
     Dosage: PO
     Route: 048
     Dates: start: 20030101
  2. BUPRENORPHINE HCL [Suspect]
     Indication: PAIN IN EXTREMITY
     Dosage: PO
     Route: 048
     Dates: start: 20080915
  3. METFORMIN HCL [Concomitant]

REACTIONS (3)
  - AORTIC ANEURYSM [None]
  - CONDITION AGGRAVATED [None]
  - INTERVERTEBRAL DISC PROTRUSION [None]
